FAERS Safety Report 4840751-8 (Version None)
Quarter: 2005Q4

REPORT INFORMATION
  Report Type: 
  Country: None (occurrence: None)
  Receive Date: 20051027
  Receipt Date: 20050315
  Transmission Date: 20060501
  Serious: Yes (Other)
  Sender: FDA-Public Use
  Company Number: HQWYE204817JUL04

PATIENT
  Age: 54 Year
  Sex: Female

DRUGS (3)
  1. PREMARIN [Suspect]
     Indication: OESTROGEN REPLACEMENT THERAPY
     Dosage: ORAL
     Route: 048
     Dates: start: 19950216
  2. PREMPRO [Suspect]
     Dosage: ORAL
     Route: 048
     Dates: start: 19960209, end: 19971030
  3. PROVERA [Suspect]
     Indication: OESTROGEN REPLACEMENT THERAPY
     Dates: start: 19950227, end: 19950911

REACTIONS (1)
  - BREAST CANCER [None]
